FAERS Safety Report 8592215-6 (Version None)
Quarter: 2012Q3

REPORT INFORMATION
  Report Type: 
  Country: None (occurrence: None)
  Receive Date: 20120814
  Receipt Date: 20120806
  Transmission Date: 20120928
  Serious: Yes (Other)
  Sender: FDA-Public Use
  Company Number: JP-ASTRAZENECA-2012SE56607

PATIENT
  Age: 82 Year
  Sex: Male

DRUGS (5)
  1. MEROPENEM [Suspect]
     Indication: SEPSIS
     Route: 041
  2. PREDNISOLONE SODIUM SUCCINATE INJ [Concomitant]
  3. PAZUFLOXACIN MESILATE [Concomitant]
  4. MEROPENEM [Suspect]
     Indication: PNEUMONIA
     Route: 041
  5. CEFTAZIDIME [Concomitant]

REACTIONS (1)
  - CRITICAL ILLNESS POLYNEUROPATHY [None]
